FAERS Safety Report 16256730 (Version 2)
Quarter: 2019Q2

REPORT INFORMATION
  Report Type: Spontaneous
  Country: US (occurrence: US)
  Receive Date: 20190430
  Receipt Date: 20190612
  Transmission Date: 20190711
  Serious: No
  Sender: FDA-Public Use
  Company Number: US-ASTRAZENECA-2019SE52637

PATIENT
  Sex: Female
  Weight: 73.5 kg

DRUGS (1)
  1. SYMBICORT [Suspect]
     Active Substance: BUDESONIDE\FORMOTEROL FUMARATE DIHYDRATE
     Indication: SINUS DISORDER
     Dosage: 160/4.5 MCG TWO INHALATIONS TWICE A DAY
     Route: 055
     Dates: start: 2018

REACTIONS (7)
  - Intentional product misuse [Unknown]
  - Product dose omission [Unknown]
  - Productive cough [Not Recovered/Not Resolved]
  - Product use in unapproved indication [Unknown]
  - Sinus disorder [Not Recovered/Not Resolved]
  - Off label use [Unknown]
  - Device issue [Unknown]
